FAERS Safety Report 8591448-2 (Version None)
Quarter: 2012Q3

REPORT INFORMATION
  Report Type: 
  Country: None (occurrence: None)
  Receive Date: 20120801
  Receipt Date: 20120719
  Transmission Date: 20120928
  Serious: Yes (Other)
  Sender: FDA-Public Use
  Company Number: 2012AP002219

PATIENT
  Sex: Female

DRUGS (5)
  1. CITALOPRAM HYDROBROMIDE [Suspect]
     Indication: ANXIETY DISORDER
     Dosage: 20 MG;QD
  2. CITALOPRAM HYDROBROMIDE [Suspect]
     Indication: OFF LABEL USE
     Dosage: 20 MG;QD
  3. MIRTAZAPINE [Suspect]
     Indication: OFF LABEL USE
     Dosage: 15 MG;HS  : 30 MG;QD : 45 MG;QD
  4. MIRTAZAPINE [Suspect]
     Indication: ANXIETY DISORDER
     Dosage: 15 MG;HS  : 30 MG;QD : 45 MG;QD
  5. ESCITALOPRAM [Suspect]
     Indication: ANXIETY DISORDER
     Dosage: 10 MG;QD

REACTIONS (6)
  - OFF LABEL USE [None]
  - URINARY RETENTION [None]
  - THERAPEUTIC RESPONSE DECREASED [None]
  - INCREASED APPETITE [None]
  - WEIGHT INCREASED [None]
  - MATERNAL EXPOSURE DURING PREGNANCY [None]
